FAERS Safety Report 16671576 (Version 2)
Quarter: 2019Q3

REPORT INFORMATION
  Report Type: Spontaneous
  Country: CA (occurrence: CA)
  Receive Date: 20190806
  Receipt Date: 20190809
  Transmission Date: 20191004
  Serious: Yes (Other)
  Sender: FDA-Public Use
  Company Number: CA-ORION CORPORATION ORION PHARMA-TREX2019-2614

PATIENT
  Age: 76 Year
  Sex: Female

DRUGS (7)
  1. CANDESARTAN. [Concomitant]
     Active Substance: CANDESARTAN
     Route: 065
  2. LIPITOR [Concomitant]
     Active Substance: ATORVASTATIN CALCIUM
     Route: 065
  3. ACYCLOVIR. [Concomitant]
     Active Substance: ACYCLOVIR
     Route: 065
  4. FOLIC ACID. [Concomitant]
     Active Substance: FOLIC ACID
     Route: 065
  5. ASA [Concomitant]
     Active Substance: ASPIRIN
     Route: 065
  6. VITAMIN D [Concomitant]
     Active Substance: VITAMIN D NOS
     Route: 065
  7. METHOTREXATE (TRADE NAME UNKNOWN) [Suspect]
     Active Substance: METHOTREXATE
     Indication: PRODUCT USED FOR UNKNOWN INDICATION
     Route: 048

REACTIONS (2)
  - Osteoarthritis [Unknown]
  - Therapeutic product effect incomplete [Unknown]
